FAERS Safety Report 9813134 (Version 1)
Quarter: 2014Q1

REPORT INFORMATION
  Report Type: Spontaneous
  Country: ES (occurrence: ES)
  Receive Date: 20140113
  Receipt Date: 20140113
  Transmission Date: 20141002
  Serious: Yes (Hospitalization)
  Sender: FDA-Public Use
  Company Number: ES-AMGEN-ESPSP2014001414

PATIENT
  Age: 84 Year
  Sex: Female

DRUGS (1)
  1. ARANESP [Suspect]
     Indication: PRODUCT USED FOR UNKNOWN INDICATION
     Dosage: 150 MUG, UNK
     Route: 065
     Dates: start: 20131206

REACTIONS (1)
  - Pulmonary thrombosis [Recovered/Resolved]
